FAERS Safety Report 23418447 (Version 1)
Quarter: 2024Q1

REPORT INFORMATION
  Report Type: Spontaneous
  Country: US (occurrence: None)
  Receive Date: 20240118
  Receipt Date: 20240118
  Transmission Date: 20240410
  Serious: Yes (Hospitalization, Other)
  Sender: FDA-Public Use
  Company Number: None

PATIENT
  Sex: Female

DRUGS (1)
  1. INFLIXIMAB [Suspect]
     Active Substance: INFLIXIMAB
     Indication: Spondyloarthropathy
     Dosage: 600MG EERY 4 WEEKS INTRAVENOUSLY
     Route: 042
     Dates: start: 202303

REACTIONS (3)
  - Colitis [None]
  - Headache [None]
  - Gait inability [None]
